FAERS Safety Report 11362993 (Version 1)
Quarter: 2015Q3

REPORT INFORMATION
  Report Type: Spontaneous
  Country: DE (occurrence: None)
  Receive Date: 20150807
  Receipt Date: 20150807
  Transmission Date: 20151125
  Serious: Yes (Death, Life-Threatening)
  Sender: FDA-Public Use
  Company Number: DE-AGG-07-2015-0609

PATIENT
  Age: 79 Year
  Sex: Female
  Weight: 54 kg

DRUGS (24)
  1. MORPHINE [Concomitant]
     Active Substance: MORPHINE
  2. HEPARIN [Concomitant]
     Active Substance: HEPARIN SODIUM
  3. KALIUMCHLORID [Concomitant]
  4. PANTOZOL [Concomitant]
     Active Substance: PANTOPRAZOLE SODIUM
  5. SUPRARENIN [Concomitant]
     Active Substance: EPINEPHRINE
  6. ACETYLSALICYLIC ACID [Concomitant]
     Active Substance: ASPIRIN
  7. DIURETIC [Concomitant]
     Active Substance: UNSPECIFIED INGREDIENT
  8. CLOPIDOGREL [Concomitant]
     Active Substance: CLOPIDOGREL BISULFATE
  9. AMIODARONE [Concomitant]
     Active Substance: AMIODARONE
  10. NOREPINEPHRINE [Concomitant]
     Active Substance: NOREPINEPHRINE\NOREPINEPHRINE BITARTRATE
  11. STRUCTOCABIVEN [Concomitant]
  12. TIROFIBAN HCL [Suspect]
     Active Substance: TIROFIBAN HYDROCHLORIDE
     Indication: ANTIPLATELET THERAPY
     Dosage: 1 X 4.5 ML EVERY 1 DAY INTRAVENOUS
     Route: 042
     Dates: start: 20070727, end: 20070727
  13. TIROFIBAN HCL [Suspect]
     Active Substance: TIROFIBAN HYDROCHLORIDE
     Indication: ANTIPLATELET THERAPY
     Dosage: 1 X 8 ML EVERY 1 HOURS INTRAVENOUS
     Route: 042
     Dates: start: 20070727, end: 20070727
  14. CALCIUM ANTAGONIST [Concomitant]
     Active Substance: UNSPECIFIED INGREDIENT
  15. ACE INHIBITOR [Concomitant]
     Active Substance: UNSPECIFIED INGREDIENT
  16. BISPROLOL FUMARATE [Concomitant]
     Active Substance: BISOPROLOL FUMARATE
  17. KONAKION [Concomitant]
     Active Substance: PHYTONADIONE
  18. SUCCINYLCHOLINE [Concomitant]
     Active Substance: SUCCINYLCHOLINE
  19. DORMICUM [Concomitant]
     Active Substance: MIDAZOLAM\MIDAZOLAM HYDROCHLORIDE
  20. NABIC 8.4% [Concomitant]
  21. TIROFIBAN HCL [Suspect]
     Active Substance: TIROFIBAN HYDROCHLORIDE
     Indication: ANTIPLATELET THERAPY
     Dosage: 1 X 25 ML EVERY 1 DAY INTRAVENOUS
     Route: 042
     Dates: start: 20070727, end: 20070728
  22. HEAS STERIL 10% [Concomitant]
  23. DOBUTAMIN [Concomitant]
  24. CORDAREX [Concomitant]
     Active Substance: AMIODARONE

REACTIONS (3)
  - Gastrointestinal haemorrhage [None]
  - Haemoglobin decreased [None]
  - Cardiac failure [None]

NARRATIVE: CASE EVENT DATE: 20070727
